FAERS Safety Report 10899170 (Version 1)
Quarter: 2015Q1

REPORT INFORMATION
  Report Type: Spontaneous
  Country: US (occurrence: US)
  Receive Date: 20150309
  Receipt Date: 20150309
  Transmission Date: 20150721
  Serious: Yes (Other)
  Sender: FDA-Public Use
  Company Number: US-MALLINCKRODT-T201501367

PATIENT
  Age: 14 Year
  Sex: Male

DRUGS (1)
  1. GABLOFEN [Suspect]
     Active Substance: BACLOFEN
     Indication: MUSCLE SPASTICITY
     Dosage: 99.9 MCG/DAY
     Route: 037

REACTIONS (2)
  - Cardiac arrest [Unknown]
  - Hypotonia [Unknown]

NARRATIVE: CASE EVENT DATE: 201411
